FAERS Safety Report 9239898 (Version 2)
Quarter: 2013Q2

REPORT INFORMATION
  Report Type: Spontaneous
  Country: US (occurrence: US)
  Receive Date: 20130418
  Receipt Date: 20130529
  Transmission Date: 20140414
  Serious: Yes (Other)
  Sender: FDA-Public Use
  Company Number: US-PFIZER INC-2013122649

PATIENT
  Age: 49 Year
  Sex: Female

DRUGS (2)
  1. DILANTIN-125 [Suspect]
     Indication: CONVULSION
     Dosage: UNK
  2. NEURONTIN [Suspect]
     Indication: CONVULSION
     Dosage: UNK

REACTIONS (2)
  - General physical health deterioration [Unknown]
  - Off label use [Unknown]
